FAERS Safety Report 14925369 (Version 6)
Quarter: 2018Q3

REPORT INFORMATION
  Report Type: Spontaneous
  Country: BE (occurrence: BE)
  Receive Date: 20180522
  Receipt Date: 20180926
  Transmission Date: 20181010
  Serious: Yes (Death, Life-Threatening, Hospitalization, Disabling, Congenital Anomaly, Other)
  Sender: FDA-Public Use
  Company Number: BE-009507513-00042414

PATIENT
  Age: 1 Day
  Sex: Female
  Weight: 2.2 kg

DRUGS (2)
  1. HYZAAR [Suspect]
     Active Substance: HYDROCHLOROTHIAZIDE\LOSARTAN POTASSIUM
     Dosage: 12.5/50 MG, DAILY
     Route: 064
  2. LOGIMAT [Suspect]
     Active Substance: FELODIPINE\METOPROLOL SUCCINATE
     Dosage: UNK
     Route: 064

REACTIONS (17)
  - Pulmonary hypoplasia [Fatal]
  - Premature baby [Not Recovered/Not Resolved]
  - Neonatal respiratory distress syndrome [Not Recovered/Not Resolved]
  - Respiratory failure [Fatal]
  - Patent ductus arteriosus [Not Recovered/Not Resolved]
  - Renal tubular disorder [Not Recovered/Not Resolved]
  - Neonatal anuria [Fatal]
  - Pulmonary vascular disorder [Not Recovered/Not Resolved]
  - Pneumothorax [Not Recovered/Not Resolved]
  - Limb deformity [Not Recovered/Not Resolved]
  - Cyanosis neonatal [Not Recovered/Not Resolved]
  - Renal disorder [Not Recovered/Not Resolved]
  - Atrial septal defect [Not Recovered/Not Resolved]
  - Pulmonary hypertension [Not Recovered/Not Resolved]
  - Cardiovascular disorder [Not Recovered/Not Resolved]
  - Foetal growth restriction [Not Recovered/Not Resolved]
  - Dysmorphism [Not Recovered/Not Resolved]

NARRATIVE: CASE EVENT DATE: 1999
